FAERS Safety Report 7053877-8 (Version None)
Quarter: 2010Q4

REPORT INFORMATION
  Report Type: 
  Country: None (occurrence: None)
  Receive Date: 20101020
  Receipt Date: 20101018
  Transmission Date: 20110411
  Serious: Yes (Death, Other)
  Sender: FDA-Public Use
  Company Number: KR-BRISTOL-MYERS SQUIBB COMPANY-14755656

PATIENT
  Age: 65 Year
  Sex: Male
  Weight: 54 kg

DRUGS (2)
  1. CISPLATIN [Suspect]
     Indication: GASTROOESOPHAGEAL CANCER
     Dosage: TAKEN ON DAY 1 OF CYCLE
     Route: 042
     Dates: start: 20090529, end: 20090701
  2. XELODA [Suspect]
     Indication: GASTROOESOPHAGEAL CANCER
     Dosage: ON DAY 1-15 FORMULATION:TABS RECENT INF:12JUN09.
     Route: 048
     Dates: start: 20090529, end: 20090701

REACTIONS (2)
  - MALIGNANT NEOPLASM PROGRESSION [None]
  - RENAL FAILURE ACUTE [None]
